FAERS Safety Report 5953891-7 (Version None)
Quarter: 2008Q4

REPORT INFORMATION
  Report Type: 
  Country: None (occurrence: None)
  Receive Date: 20081114
  Receipt Date: 20081105
  Transmission Date: 20090506
  Serious: Yes (Other)
  Sender: FDA-Public Use
  Company Number: NL-B.I. PHARMACEUTICALS,INC./RIDGEFIELD-2008-NL-00725NL

PATIENT
  Sex: Male

DRUGS (1)
  1. SIFROL [Suspect]
     Indication: RESTLESS LEGS SYNDROME
     Dosage: NR
     Dates: start: 20070101, end: 20080101

REACTIONS (2)
  - PARAESTHESIA [None]
  - PEYRONIE'S DISEASE [None]
